FAERS Safety Report 21620292 (Version 2)
Quarter: 2022Q4

REPORT INFORMATION
  Report Type: Spontaneous
  Country: US (occurrence: US)
  Receive Date: 20221121
  Receipt Date: 20221215
  Transmission Date: 20230113
  Serious: No
  Sender: FDA-Public Use
  Company Number: US-HETERO-HET2022US02927

PATIENT
  Sex: Male

DRUGS (1)
  1. ATOMOXETINE [Suspect]
     Active Substance: ATOMOXETINE
     Indication: Product used for unknown indication
     Dosage: UNK
     Route: 048
     Dates: start: 20221117, end: 20221117

REACTIONS (2)
  - Accidental exposure to product by child [Unknown]
  - No adverse event [Unknown]
